FAERS Safety Report 18592701 (Version 8)
Quarter: 2021Q1

REPORT INFORMATION
  Report Type: Report from Study
  Country: IL (occurrence: IL)
  Receive Date: 20201208
  Receipt Date: 20210202
  Transmission Date: 20210419
  Serious: Yes (Hospitalization)
  Sender: FDA-Public Use
  Company Number: IL-EISAI MEDICAL RESEARCH-EC-2020-084940

PATIENT
  Age: 72 Year
  Sex: Male
  Weight: 72 kg

DRUGS (12)
  1. LENVATINIB [Suspect]
     Active Substance: LENVATINIB
     Route: 048
     Dates: start: 20201220
  2. PEMBROLIZUMAB. [Suspect]
     Active Substance: PEMBROLIZUMAB
     Route: 041
     Dates: start: 20201214
  3. MICROPIRIN [Concomitant]
     Active Substance: ASPIRIN
     Dates: start: 201911
  4. CAPOTEN [Concomitant]
     Active Substance: CAPTOPRIL
     Dates: start: 20201125, end: 20201125
  5. TRITACE [Concomitant]
     Active Substance: RAMIPRIL
     Dates: start: 20201124, end: 20201125
  6. LENVATINIB [Suspect]
     Active Substance: LENVATINIB
     Indication: COLORECTAL CANCER
     Route: 048
     Dates: start: 20201112, end: 20201201
  7. PEMBROLIZUMAB. [Suspect]
     Active Substance: PEMBROLIZUMAB
     Indication: COLORECTAL CANCER
     Route: 041
     Dates: start: 20201112, end: 20201112
  8. LOPERAMIDE HYDROCHLORIDE. [Concomitant]
     Active Substance: LOPERAMIDE HYDROCHLORIDE
     Dates: start: 20201118
  9. LITORVA [Concomitant]
     Active Substance: ATORVASTATIN CALCIUM
     Dates: start: 200201
  10. EXFORGE [Concomitant]
     Active Substance: AMLODIPINE BESYLATE\VALSARTAN
     Dates: start: 20201126
  11. STOPIT [Concomitant]
     Dates: start: 20201116, end: 20201119
  12. ACECLOFENAC/ACETAMINOPHEN [Concomitant]
     Dates: start: 20201129, end: 20201129

REACTIONS (1)
  - Hyponatraemia [Recovered/Resolved]

NARRATIVE: CASE EVENT DATE: 20201202
